FAERS Safety Report 18788508 (Version 1)
Quarter: 2021Q1

REPORT INFORMATION
  Report Type: Spontaneous
  Country: US (occurrence: US)
  Receive Date: 20210125
  Receipt Date: 20210125
  Transmission Date: 20210419
  Serious: No
  Sender: FDA-Public Use
  Company Number: US-ROCHE-2691847

PATIENT
  Age: 33 Year
  Sex: Female

DRUGS (2)
  1. RITUXAN [Suspect]
     Active Substance: RITUXIMAB
     Indication: PEMPHIGUS
     Dosage: UNKNOWN
     Route: 065
     Dates: start: 20200101
  2. RITUXAN [Suspect]
     Active Substance: RITUXIMAB
     Dosage: UNKNOWN
     Route: 065

REACTIONS (3)
  - Intentional product misuse [Unknown]
  - Off label use [Unknown]
  - Vaginal haemorrhage [Recovered/Resolved]

NARRATIVE: CASE EVENT DATE: 202001
